FAERS Safety Report 7953760-7 (Version None)
Quarter: 2011Q4

REPORT INFORMATION
  Report Type: 
  Country: None (occurrence: None)
  Receive Date: 20111129
  Receipt Date: 20111115
  Transmission Date: 20120403
  Serious: Yes (Hospitalization, Other)
  Sender: FDA-Public Use
  Company Number: 2010SP065562

PATIENT
  Age: 27 Year
  Sex: Female
  Weight: 74.8435 kg

DRUGS (2)
  1. NUVARING [Suspect]
     Indication: CONTRACEPTION
     Dates: start: 20080601, end: 20090111
  2. IBUPROFEN (ADVIL) [Concomitant]

REACTIONS (14)
  - HYPOTHYROIDISM [None]
  - OVARIAN CYST [None]
  - ELECTROCARDIOGRAM T WAVE ABNORMAL [None]
  - DIZZINESS [None]
  - ACCIDENTAL EXPOSURE [None]
  - URINARY TRACT INFECTION [None]
  - VERTIGO [None]
  - TRICUSPID VALVE INCOMPETENCE [None]
  - DIPLOPIA [None]
  - PULMONARY EMBOLISM [None]
  - LUNG NEOPLASM [None]
  - BUNDLE BRANCH BLOCK RIGHT [None]
  - MATERNAL EXPOSURE BEFORE PREGNANCY [None]
  - UPPER RESPIRATORY TRACT INFECTION [None]
